FAERS Safety Report 8502872-8 (Version None)
Quarter: 2012Q3

REPORT INFORMATION
  Report Type: 
  Country: None (occurrence: None)
  Receive Date: 20120711
  Receipt Date: 20120703
  Transmission Date: 20120928
  Serious: Yes (Disabling)
  Sender: FDA-Public Use
  Company Number: FR-ASTRAZENECA-2012SE45188

PATIENT
  Age: 952 Month
  Sex: Female

DRUGS (7)
  1. SOLU-MEDROL [Suspect]
     Dosage: DOSE PROGRESSIVELY DECREASED FROM 250 MG PER DAY UNTIL THE END OF THE END OF THERAPY
     Route: 048
     Dates: start: 20110601, end: 20111001
  2. HYDROCORTISONE [Suspect]
     Route: 048
     Dates: start: 20111001
  3. XOLAIR [Suspect]
     Indication: ASTHMA
     Route: 058
     Dates: start: 20110101
  4. VITAMIN D [Suspect]
     Route: 048
     Dates: start: 20101126
  5. SYMBICORT [Suspect]
     Indication: ASTHMA
     Dosage: 320/9 UG PER DOSE, ONE INHALATION TWICE PER DAY
     Route: 055
     Dates: start: 20010101
  6. SINGULAIR [Suspect]
     Indication: ASTHMA
     Route: 048
     Dates: start: 20091001
  7. CALCIUM [Suspect]
     Route: 048
     Dates: start: 20100501

REACTIONS (1)
  - TENDONITIS [None]
